FAERS Safety Report 8037914-X (Version None)
Quarter: 2012Q1

REPORT INFORMATION
  Report Type: 
  Country: None (occurrence: None)
  Receive Date: 20120105
  Receipt Date: 20111222
  Transmission Date: 20120608
  Serious: Yes (Hospitalization)
  Sender: FDA-Public Use
  Company Number: 2011315936

PATIENT
  Age: 65 Year
  Sex: Male
  Weight: 100 kg

DRUGS (14)
  1. COLACE (DOCUSATE SODIUM) [Concomitant]
  2. KEPPRA [Concomitant]
  3. OMEPRAZOLE [Concomitant]
  4. TRIAMCINOLONE [Concomitant]
  5. DECADRON [Concomitant]
  6. NYSTATIN [Concomitant]
  7. SEROQUEL [Concomitant]
  8. DALTEPARIN SODIUM [Suspect]
     Indication: DEEP VEIN THROMBOSIS
     Dosage: 18000; 15000; 18000, SUBCUTANEOUS
     Route: 058
     Dates: start: 20110215, end: 20110715
  9. DALTEPARIN SODIUM [Suspect]
     Indication: DEEP VEIN THROMBOSIS
     Dosage: 18000; 15000; 18000, SUBCUTANEOUS
     Route: 058
     Dates: start: 20110719
  10. DALTEPARIN SODIUM [Suspect]
     Indication: DEEP VEIN THROMBOSIS
     Dosage: 18000; 15000; 18000, SUBCUTANEOUS
     Route: 058
     Dates: start: 20110718, end: 20110718
  11. AVASTIN [Concomitant]
  12. SYNTHROID (ILEVOTHYROXINE SODIUM) [Concomitant]
  13. ONDANSETRON HYDROCHLORIDE [Concomitant]
  14. RITALIN TAB [Concomitant]

REACTIONS (3)
  - REFUSAL OF TREATMENT BY PATIENT [None]
  - CHEST PAIN [None]
  - HYPOTENSION [None]
